FAERS Safety Report 14490690 (Version 1)
Quarter: 2018Q1

REPORT INFORMATION
  Report Type: Spontaneous
  Country: DE (occurrence: DE)
  Receive Date: 20180206
  Receipt Date: 20180206
  Transmission Date: 20180509
  Serious: Yes (Hospitalization)
  Sender: FDA-Public Use
  Company Number: DE-ORION CORPORATION ORION PHARMA-18_00002877

PATIENT
  Sex: Female

DRUGS (6)
  1. ENBREL [Concomitant]
     Active Substance: ETANERCEPT
     Route: 065
     Dates: start: 201111, end: 201202
  2. ORENCIA [Concomitant]
     Active Substance: ABATACEPT
     Route: 065
     Dates: start: 201207, end: 201306
  3. HUMIRA [Suspect]
     Active Substance: ADALIMUMAB
     Indication: RHEUMATIC DISORDER
     Route: 058
     Dates: start: 200906, end: 201111
  4. HUMIRA [Suspect]
     Active Substance: ADALIMUMAB
     Route: 058
     Dates: start: 201306
  5. METHOTREXATE (TRADE NAME UNKNOWN) [Suspect]
     Active Substance: METHOTREXATE
     Route: 065
     Dates: start: 2016
  6. METHOTREXATE (TRADE NAME UNKNOWN) [Suspect]
     Active Substance: METHOTREXATE
     Route: 065
     Dates: start: 2012, end: 2016

REACTIONS (2)
  - Bowen^s disease [Recovered/Resolved]
  - Basal cell carcinoma [Recovered/Resolved]

NARRATIVE: CASE EVENT DATE: 20160501
